FAERS Safety Report 7535933-0 (Version None)
Quarter: 2011Q2

REPORT INFORMATION
  Report Type: 
  Country: None (occurrence: None)
  Receive Date: 20110602
  Receipt Date: 20110510
  Transmission Date: 20111010
  Serious: Yes (Hospitalization)
  Sender: FDA-Public Use
  Company Number: DKLU1070021

PATIENT
  Age: 1 Year
  Sex: Male

DRUGS (1)
  1. SABRIL [Suspect]
     Indication: INFANTILE SPASMS
     Dosage: 750 MILLIGRAM(S), 2 IN 1 D

REACTIONS (5)
  - PNEUMONIA ASPIRATION [None]
  - CONVULSION [None]
  - DYSPNOEA [None]
  - VOMITING [None]
  - PYREXIA [None]
